FAERS Safety Report 9261700 (Version 2)
Quarter: 2013Q2

REPORT INFORMATION
  Report Type: Spontaneous
  Country: AU (occurrence: AU)
  Receive Date: 20130429
  Receipt Date: 20130502
  Transmission Date: 20140414
  Serious: Yes (Hospitalization)
  Sender: FDA-Public Use
  Company Number: AU-ALEXION PHARMACEUTICALS INC.-A201300443

PATIENT
  Age: 17 Year
  Sex: Female

DRUGS (7)
  1. SOLIRIS 300MG [Suspect]
     Indication: APLASTIC ANAEMIA
     Dosage: 900 MG, Q2W
     Route: 042
     Dates: start: 20120801
  2. INFLUENZA VACCINES [Concomitant]
     Dosage: UNK
     Dates: start: 20130226, end: 20130226
  3. PNEUMOCOCCAL VACCINE [Concomitant]
     Dosage: UNK
     Dates: start: 20130226, end: 20130226
  4. BLOOD TRANSFUSION, AUXILIARY PRODUCTS [Concomitant]
     Dosage: UNK
  5. ATGAM [Concomitant]
     Indication: IMMUNOSUPPRESSION
  6. CYCLOSPORINE [Concomitant]
     Indication: IMMUNOSUPPRESSION
  7. ANTIBIOTICS [Concomitant]
     Indication: PROPHYLAXIS

REACTIONS (4)
  - Epstein-Barr virus infection [Recovering/Resolving]
  - Pseudomonas infection [Recovering/Resolving]
  - Pyrexia [Unknown]
  - Fungal infection [Not Recovered/Not Resolved]
